FAERS Safety Report 25745912 (Version 1)
Quarter: 2025Q3

REPORT INFORMATION
  Report Type: Spontaneous
  Country: CN (occurrence: CN)
  Receive Date: 20250901
  Receipt Date: 20250901
  Transmission Date: 20251021
  Serious: Yes (Life-Threatening, Hospitalization)
  Sender: NOVARTIS
  Company Number: CN-002147023-NVSC2025CN136071

PATIENT
  Age: 33 Year
  Sex: Female

DRUGS (4)
  1. OXCARBAZEPINE [Suspect]
     Active Substance: OXCARBAZEPINE
     Indication: Epilepsy
     Dosage: 150 MG, QD
     Route: 065
  2. OXCARBAZEPINE [Suspect]
     Active Substance: OXCARBAZEPINE
     Dosage: 75 MG, QD (GRADUAL REDUCTION IN OXCARBAZEPINE DOSE TO 75 MG/DAY)
     Route: 065
  3. LAMOTRIGINE [Suspect]
     Active Substance: LAMOTRIGINE
     Indication: Epilepsy
     Dosage: 25 MG, QD
     Route: 065
  4. TOPIRAMATE [Suspect]
     Active Substance: TOPIRAMATE
     Indication: Epilepsy
     Dosage: 100 MG, QD
     Route: 065

REACTIONS (11)
  - Toxic epidermal necrolysis [Recovered/Resolved]
  - Rash erythematous [Recovered/Resolved]
  - Oral mucosa erosion [Recovered/Resolved]
  - Dysphagia [Recovered/Resolved]
  - Pain in extremity [Recovered/Resolved]
  - Macule [Recovered/Resolved]
  - Papule [Recovered/Resolved]
  - Blister [Recovered/Resolved]
  - Skin swelling [Recovered/Resolved]
  - Skin exfoliation [Recovered/Resolved]
  - Lip erosion [Recovered/Resolved]
